FAERS Safety Report 6522532-2 (Version None)
Quarter: 2009Q4

REPORT INFORMATION
  Report Type: 
  Country: None (occurrence: None)
  Receive Date: 20091230
  Receipt Date: 20091215
  Transmission Date: 20100525
  Serious: Yes (Death)
  Sender: FDA-Public Use
  Company Number: FR-GENENTECH-296159

PATIENT
  Sex: Male

DRUGS (8)
  1. RANIBIZUMAB [Suspect]
     Indication: MACULAR DEGENERATION
     Dosage: UNK
     Route: 031
     Dates: start: 20080612
  2. RANIBIZUMAB [Suspect]
     Dosage: UNK
     Route: 031
  3. RANIBIZUMAB [Suspect]
     Route: 031
  4. RANIBIZUMAB [Suspect]
     Route: 031
  5. RANIBIZUMAB [Suspect]
     Route: 031
  6. RANIBIZUMAB [Suspect]
     Dosage: UNK
     Route: 031
     Dates: end: 20091023
  7. LESCOL [Concomitant]
     Indication: DRUG USE FOR UNKNOWN INDICATION
  8. FOZITEC [Concomitant]
     Indication: DRUG USE FOR UNKNOWN INDICATION

REACTIONS (1)
  - MYOCARDIAL INFARCTION [None]
